FAERS Safety Report 4828999-X (Version None)
Quarter: 2005Q4

REPORT INFORMATION
  Report Type: 
  Country: None (occurrence: None)
  Receive Date: 20051027
  Receipt Date: 20050311
  Transmission Date: 20060501
  Serious: Yes (Other)
  Sender: FDA-Public Use
  Company Number: HQWYE301421JUL04

PATIENT
  Sex: Female
  Weight: 56.75 kg

DRUGS (1)
  1. PREMARIN [Suspect]
     Dosage: ORAL
     Route: 048
     Dates: start: 19760101, end: 19910101

REACTIONS (1)
  - OVARIAN CANCER [None]
